FAERS Safety Report 9848062 (Version 1)
Quarter: 2014Q1

REPORT INFORMATION
  Report Type: Spontaneous
  Country: US (occurrence: US)
  Receive Date: 20140128
  Receipt Date: 20140128
  Transmission Date: 20141002
  Serious: No
  Sender: FDA-Public Use
  Company Number: US-009507513-1401USA012321

PATIENT
  Age: 81 Year
  Sex: Female

DRUGS (1)
  1. TIMOPTIC [Suspect]
     Indication: EXFOLIATION GLAUCOMA
     Dosage: 0.5%, OPTHALMIC SOLUTION
     Route: 047

REACTIONS (2)
  - Nail ridging [Recovered/Resolved]
  - Nail discolouration [Recovered/Resolved]
